FAERS Safety Report 14264226 (Version 1)
Quarter: 2017Q4

REPORT INFORMATION
  Report Type: Spontaneous
  Country: JP (occurrence: JP)
  Receive Date: 20171208
  Receipt Date: 20171208
  Transmission Date: 20180321
  Serious: Yes (Other)
  Sender: FDA-Public Use
  Company Number: JP-PFIZER INC-2017514716

PATIENT

DRUGS (1)
  1. NASANYL [Suspect]
     Active Substance: NAFARELIN ACETATE
     Dosage: UNK
     Dates: start: 201709

REACTIONS (3)
  - Laryngeal oedema [Unknown]
  - Dysphonia [Recovering/Resolving]
  - Anaemia [Unknown]

NARRATIVE: CASE EVENT DATE: 201709
